FAERS Safety Report 6497898-2 (Version None)
Quarter: 2009Q4

REPORT INFORMATION
  Report Type: 
  Country: None (occurrence: None)
  Receive Date: 20091215
  Receipt Date: 20091203
  Transmission Date: 20100525
  Serious: Yes (Hospitalization, Disabling)
  Sender: FDA-Public Use
  Company Number: JP-NOVOPROD-301691

PATIENT
  Age: 39 Year
  Sex: Male
  Weight: 37 kg

DRUGS (2)
  1. NOVOLIN N [Suspect]
     Indication: DIABETES MELLITUS
     Dosage: NOT REPORTED/SC
     Route: 058
  2. HUMALOG [Concomitant]
     Dosage: NOT REPORTED/SC
     Route: 058

REACTIONS (3)
  - HYPOGLYCAEMIC ENCEPHALOPATHY [None]
  - HYPOGLYCAEMIC UNCONSCIOUSNESS [None]
  - INAPPROPRIATE ANTIDIURETIC HORMONE SECRETION [None]
